FAERS Safety Report 18017719 (Version 2)
Quarter: 2020Q3

REPORT INFORMATION
  Report Type: Report from Study
  Country: FR (occurrence: FR)
  Receive Date: 20200713
  Receipt Date: 20200806
  Transmission Date: 20201103
  Serious: Yes (Other)
  Sender: FDA-Public Use
  Company Number: FR-ROCHE-2639102

PATIENT
  Age: 77 Year
  Sex: Male

DRUGS (2)
  1. NAVELBINE [Suspect]
     Active Substance: VINORELBINE TARTRATE
     Indication: NON-SMALL CELL LUNG CANCER
     Dosage: CYCLE 1=23?DEC?2019; CYCLE 2=13?JAN?2020; CYCLE 3=03?FEB?2020; CYCLE 4=24?FEB?2020; CYCLE 5=16?MAR?2
     Route: 048
     Dates: start: 20191223, end: 20200425
  2. ATEZOLIZUMAB. [Suspect]
     Active Substance: ATEZOLIZUMAB
     Indication: NEOPLASM MALIGNANT
     Dosage: CYCLE 1=23?DEC?2019; CYCLE 2=13?JAN?2020; CYCLE 3=03?FEB?2020; CYCLE 4=24?FEB? 2020; CYCLE 5=16?MAR?
     Route: 042
     Dates: start: 20191223, end: 20200406

REACTIONS (1)
  - Neoplasm progression [Not Recovered/Not Resolved]

NARRATIVE: CASE EVENT DATE: 20200414
